FAERS Safety Report 9373311 (Version 1)
Quarter: 2013Q2

REPORT INFORMATION
  Report Type: Spontaneous
  Country: FR (occurrence: FR)
  Receive Date: 20130627
  Receipt Date: 20130627
  Transmission Date: 20140414
  Serious: Yes (Death, Other)
  Sender: FDA-Public Use
  Company Number: FR-TEVA-415310ISR

PATIENT
  Age: 88 Year
  Sex: Female

DRUGS (6)
  1. FUROSEMIDE TEVA 40 MG [Suspect]
     Dosage: 120 MILLIGRAM DAILY; SCORED TABLET
     Route: 048
     Dates: end: 20130531
  2. ODRIK 0.5 MG [Concomitant]
     Dosage: .5 MILLIGRAM DAILY;
     Route: 048
  3. CARDENSIEL [Concomitant]
     Dosage: 1.25 MILLIGRAM DAILY;
     Route: 048
  4. HEMIGOXINE NATIVELLE O.125 MG [Concomitant]
     Dosage: .125 MILLIGRAM DAILY;
     Route: 048
  5. LAMALINE [Concomitant]
     Dosage: 6 DOSAGE FORMS DAILY;
     Route: 048
  6. PREVISCAN 20 MG [Concomitant]
     Dosage: SCORED TABLET
     Route: 048

REACTIONS (4)
  - Cardiac failure [Fatal]
  - Muscle haemorrhage [Unknown]
  - International normalised ratio increased [Unknown]
  - Somnolence [Unknown]
